FAERS Safety Report 11716432 (Version 2)
Quarter: 2015Q4

REPORT INFORMATION
  Report Type: Spontaneous
  Country: US (occurrence: US)
  Receive Date: 20151104
  Receipt Date: 20151110
  Transmission Date: 20160304
  Serious: No
  Sender: FDA-Public Use
  Company Number: US-ELI_LILLY_AND_COMPANY-US201106006399

PATIENT
  Sex: Male

DRUGS (2)
  1. FORTEO [Suspect]
     Active Substance: TERIPARATIDE
     Dosage: 20 UG, UNK
  2. FORTEO [Suspect]
     Active Substance: TERIPARATIDE
     Dosage: 20 UG, UNK
     Route: 065

REACTIONS (6)
  - Visual acuity reduced [Unknown]
  - Bone density abnormal [Unknown]
  - Injection site pain [Unknown]
  - Injection site bruising [Unknown]
  - Medication error [Unknown]
  - Growing pains [Unknown]
